FAERS Safety Report 6014925-7 (Version None)
Quarter: 2008Q4

REPORT INFORMATION
  Report Type: 
  Country: None (occurrence: None)
  Receive Date: 20081219
  Receipt Date: 20081215
  Transmission Date: 20090506
  Serious: Yes (Other)
  Sender: FDA-Public Use
  Company Number: JM-B.I. PHARMACEUTICALS,INC./RIDGEFIELD-2008-DE-07708GD

PATIENT
  Age: 8 Month
  Sex: Male

DRUGS (3)
  1. NEVIRAPINE [Suspect]
     Indication: HIV INFECTION
  2. ZIDOVUDINE [Suspect]
     Indication: HIV INFECTION
  3. LAMIVUDINE [Suspect]
     Indication: HIV INFECTION

REACTIONS (3)
  - APPLICATION SITE ULCER [None]
  - IMMUNE RECONSTITUTION SYNDROME [None]
  - LYMPHADENITIS [None]
